FAERS Safety Report 10609242 (Version 1)
Quarter: 2014Q4

REPORT INFORMATION
  Report Type: Spontaneous
  Country: SI (occurrence: SI)
  Receive Date: 20141126
  Receipt Date: 20141126
  Transmission Date: 20150529
  Serious: Yes (Other)
  Sender: FDA-Public Use
  Company Number: SI-AMGEN-SVNSP2014090957

PATIENT
  Age: 59 Year
  Sex: Female

DRUGS (2)
  1. MIMPARA [Suspect]
     Active Substance: CINACALCET HYDROCHLORIDE
     Indication: HYPERPARATHYROIDISM SECONDARY
     Dosage: UNK
     Route: 065
  2. PARICALCITOL. [Concomitant]
     Active Substance: PARICALCITOL
     Indication: HYPERPARATHYROIDISM SECONDARY
     Dosage: UNK

REACTIONS (6)
  - Blood parathyroid hormone increased [Unknown]
  - Hungry bone syndrome [Unknown]
  - Parathyroid gland enlargement [Unknown]
  - High turnover osteopathy [Unknown]
  - Brown tumour [Unknown]
  - Drug ineffective [Unknown]
